FAERS Safety Report 9415517 (Version 4)
Quarter: 2015Q1

REPORT INFORMATION
  Report Type: Spontaneous
  Country: DK (occurrence: DK)
  Receive Date: 20130723
  Receipt Date: 20150313
  Transmission Date: 20150721
  Serious: Yes (Hospitalization)
  Sender: FDA-Public Use
  Company Number: DK-PFIZER INC-2013211159

PATIENT
  Age: 41 Year
  Sex: Male

DRUGS (10)
  1. PREDNISOLON [Suspect]
     Active Substance: PREDNISOLONE
     Dosage: 20 MG DAILY, TO BE REDUCED TO 5 MG WEEKLY
     Route: 048
     Dates: start: 20021209, end: 20030328
  2. PREDNISOLON [Suspect]
     Active Substance: PREDNISOLONE
     Dosage: TREATED SPORADICALLY WITH PREDNISOLONE
     Route: 048
     Dates: start: 20041018
  3. SOLU-MEDROL [Suspect]
     Active Substance: METHYLPREDNISOLONE SODIUM SUCCINATE
     Indication: CHRONIC OBSTRUCTIVE PULMONARY DISEASE
     Dosage: 80 MG, 3X/DAY
     Route: 042
     Dates: start: 20020430, end: 20020501
  4. PREDNISOLON [Suspect]
     Active Substance: PREDNISOLONE
     Dosage: 2.5 MG, DISCHARGED WITH 25 MG DAILY
     Route: 048
     Dates: start: 20030927, end: 20031112
  5. BRICANYL [Concomitant]
     Active Substance: TERBUTALINE SULFATE
     Indication: CHRONIC OBSTRUCTIVE PULMONARY DISEASE
     Dosage: UNK
  6. VITAMIN D [Concomitant]
     Active Substance: CHOLECALCIFEROL
     Indication: VITAMIN D DECREASED
     Dosage: 2 TABLETS DAILY
     Dates: start: 20041018
  7. KALCIFEROL [Concomitant]
     Indication: VITAMIN D DECREASED
     Dosage: INJECTION 200.000 IE
     Dates: start: 20041018
  8. PREDNISOLON [Suspect]
     Active Substance: PREDNISOLONE
     Dosage: 20 MG DAILY; PLANNED TO BE REDUCED OVER 4 WEEKS
     Route: 048
     Dates: start: 20030822, end: 20031112
  9. CALCIUM AND VITAMIN D [Concomitant]
     Active Substance: CALCIUM\VITAMIN D
     Dosage: 2 TABLETS DAILY
     Dates: start: 20021208
  10. PREDNISOLON [Suspect]
     Active Substance: PREDNISOLONE
     Indication: CHRONIC OBSTRUCTIVE PULMONARY DISEASE
     Dosage: 37.5 MG, 1X/DAY
     Route: 048
     Dates: start: 20020502, end: 20020701

REACTIONS (8)
  - Hip arthroplasty [Recovered/Resolved]
  - Osteonecrosis [Unknown]
  - Hip arthroplasty [Recovered/Resolved]
  - Arthralgia [Recovered/Resolved]
  - Hepatic enzyme increased [Unknown]
  - Osteonecrosis [Unknown]
  - Type 1 diabetes mellitus [Recovered/Resolved]
  - Haematemesis [Unknown]

NARRATIVE: CASE EVENT DATE: 20020611
